FAERS Safety Report 9494013 (Version 5)
Quarter: 2014Q3

REPORT INFORMATION
  Report Type: Spontaneous
  Country: JP (occurrence: JP)
  Receive Date: 20130903
  Receipt Date: 20140826
  Transmission Date: 20150326
  Serious: Yes (Death, Other)
  Sender: FDA-Public Use
  Company Number: JP-BRISTOL-MYERS SQUIBB COMPANY-19167782

PATIENT
  Age: 36 Year
  Sex: Female

DRUGS (8)
  1. MEILAX [Concomitant]
     Active Substance: ETHYL LOFLAZEPATE
     Dates: start: 20120413
  2. ABILIFY [Suspect]
     Active Substance: ARIPIPRAZOLE
     Indication: SCHIZOPHRENIA
     Dosage: 6MG/D-6OCT11-UNK, ?30MG/D-UNK-4JAN12?30MG/D-5JAN-7MAY12-124D?24MG/D-8-9MAY12-2D
     Route: 048
     Dates: start: 20111006, end: 20120509
  3. MYSLEE [Concomitant]
     Active Substance: ZOLPIDEM TARTRATE
     Dosage: TABS
     Dates: start: 20120413
  4. AKINETON [Concomitant]
     Active Substance: BIPERIDEN HYDROCHLORIDE
     Dates: end: 20120413
  5. ABILIFY [Suspect]
     Active Substance: ARIPIPRAZOLE
     Indication: SCHIZOPHRENIA
     Dosage: UNK: UNKNOWN -04JAN2014
     Route: 048
     Dates: start: 20111006
  6. ABILIFY [Suspect]
     Active Substance: ARIPIPRAZOLE
     Indication: COMPULSIONS
     Dosage: UNK: UNKNOWN -04JAN2014
     Route: 048
     Dates: start: 20111006
  7. ROHYPNOL [Concomitant]
     Active Substance: FLUNITRAZEPAM
     Dosage: TABS
     Dates: start: 20120413
  8. ABILIFY [Suspect]
     Active Substance: ARIPIPRAZOLE
     Indication: COMPULSIONS
     Dosage: 6MG/D-6OCT11-UNK, ?30MG/D-UNK-4JAN12?30MG/D-5JAN-7MAY12-124D?24MG/D-8-9MAY12-2D
     Route: 048
     Dates: start: 20111006, end: 20120509

REACTIONS (2)
  - Multi-organ failure [Fatal]
  - Neuroleptic malignant syndrome [Fatal]

NARRATIVE: CASE EVENT DATE: 20120510
